FAERS Safety Report 7059982-4 (Version None)
Quarter: 2010Q4

REPORT INFORMATION
  Report Type: 
  Country: None (occurrence: None)
  Receive Date: 20101025
  Receipt Date: 20101015
  Transmission Date: 20110411
  Serious: Yes (Hospitalization, Other)
  Sender: FDA-Public Use
  Company Number: VE-GENZYME-POMP-1001116

PATIENT
  Sex: Male

DRUGS (1)
  1. MYOZYME [Suspect]
     Indication: GLYCOGEN STORAGE DISEASE TYPE II
     Dosage: 20 MG/KG, Q2W
     Route: 042
     Dates: start: 20050719

REACTIONS (4)
  - CONVULSION [None]
  - ENCEPHALITIS VIRAL [None]
  - HYPERTHERMIA [None]
  - PNEUMONIA KLEBSIELLA [None]
